FAERS Safety Report 7931624-2 (Version None)
Quarter: 2011Q4

REPORT INFORMATION
  Report Type: 
  Country: None (occurrence: None)
  Receive Date: 20111121
  Receipt Date: 20111108
  Transmission Date: 20120403
  Serious: Yes (Hospitalization)
  Sender: FDA-Public Use
  Company Number: PHHO2010DE05244

PATIENT
  Sex: Female

DRUGS (4)
  1. SIMULECT [Suspect]
     Indication: RENAL TRANSPLANT
     Dosage: UNK
     Route: 048
     Dates: start: 20100120
  2. RAD 666 [Suspect]
     Indication: RENAL TRANSPLANT
     Dosage: 1.5 MG, UNK
     Route: 048
     Dates: start: 20100317, end: 20100318
  3. CYCLOSPORINE [Suspect]
     Indication: RENAL TRANSPLANT
     Dosage: 200 MG, QD
     Route: 048
     Dates: start: 20100120, end: 20100324
  4. MYFORTIC [Suspect]
     Indication: RENAL TRANSPLANT
     Dosage: 2160 MG, UNK
     Route: 048
     Dates: start: 20100120

REACTIONS (8)
  - ABDOMINAL PAIN [None]
  - NAUSEA [None]
  - INCISIONAL HERNIA [None]
  - GASTROENTERITIS VIRAL [None]
  - DIARRHOEA [None]
  - ACUTE PRERENAL FAILURE [None]
  - VOMITING [None]
  - WOUND DEHISCENCE [None]
